FAERS Safety Report 5040836-X (Version None)
Quarter: 2006Q2

REPORT INFORMATION
  Report Type: 
  Country: None (occurrence: None)
  Receive Date: 20060601
  Receipt Date: 20060302
  Transmission Date: 20061013
  Serious: No
  Sender: FDA-Public Use
  Company Number: 2006PV009622

PATIENT
  Age: 49 Year
  Sex: Male
  Weight: 127.0072 kg

DRUGS (5)
  1. BYETTA [Suspect]
     Indication: DIABETES MELLITUS NON-INSULIN-DEPENDENT
     Dosage: SEE IMAGE
     Route: 058
     Dates: start: 20060221, end: 20060323
  2. BYETTA [Suspect]
     Indication: DIABETES MELLITUS NON-INSULIN-DEPENDENT
     Dosage: SEE IMAGE
     Route: 058
     Dates: start: 20060324
  3. LANTUS [Concomitant]
  4. METFORMIN [Concomitant]
  5. UNKNOWN BLOOD THINNER [Concomitant]

REACTIONS (8)
  - FEELING COLD [None]
  - FEELING JITTERY [None]
  - HYPOGLYCAEMIA [None]
  - INFLUENZA [None]
  - NAUSEA [None]
  - PARAESTHESIA [None]
  - VOMITING [None]
  - WEIGHT DECREASED [None]
